FAERS Safety Report 17933281 (Version 2)
Quarter: 2020Q3

REPORT INFORMATION
  Report Type: Spontaneous
  Country: SI (occurrence: SI)
  Receive Date: 20200623
  Receipt Date: 20200713
  Transmission Date: 20201103
  Serious: Yes (Other)
  Sender: FDA-Public Use
  Company Number: SI-BAYER-2020-124469

PATIENT
  Age: 72 Year
  Sex: Male

DRUGS (1)
  1. NEXAVAR [Suspect]
     Active Substance: SORAFENIB
     Indication: HEPATOCELLULAR CARCINOMA
     Dosage: 2 X 400 MG
     Dates: start: 20200317, end: 20200618

REACTIONS (1)
  - Hepatocellular carcinoma [None]

NARRATIVE: CASE EVENT DATE: 20200617
